FAERS Safety Report 19281929 (Version 1)
Quarter: 2021Q2

REPORT INFORMATION
  Report Type: Report from Study
  Country: US (occurrence: US)
  Receive Date: 20210520
  Receipt Date: 20210520
  Transmission Date: 20210717
  Serious: Yes (Other)
  Sender: FDA-Public Use
  Company Number: US-B.I. PHARMACEUTICALS,INC./RIDGEFIELD-2021-BI-096073

PATIENT
  Age: 79 Year
  Sex: Male

DRUGS (1)
  1. OFEV [Suspect]
     Active Substance: NINTEDANIB
     Indication: IDIOPATHIC PULMONARY FIBROSIS
     Dosage: 100MG TWICE DAILY BY MOUTH.
     Route: 048
     Dates: start: 20210319, end: 202104

REACTIONS (3)
  - Abdominal discomfort [Unknown]
  - Cerebral haemorrhage [Unknown]
  - Sinusitis [Unknown]

NARRATIVE: CASE EVENT DATE: 202104
